FAERS Safety Report 7977904-6 (Version None)
Quarter: 2011Q4

REPORT INFORMATION
  Report Type: 
  Country: None (occurrence: None)
  Receive Date: 20111214
  Receipt Date: 20111209
  Transmission Date: 20120403
  Serious: Yes (Other)
  Sender: FDA-Public Use
  Company Number: IE-BIOGENIDEC-2011BI021386

PATIENT
  Age: 51 Year
  Sex: Female

DRUGS (5)
  1. NEURONTIN [Concomitant]
     Indication: MUSCLE TIGHTNESS
  2. TYSABRI [Suspect]
     Indication: MULTIPLE SCLEROSIS
     Dates: start: 20071008, end: 20110331
  3. LEVOTHYROXINE SODIUM [Concomitant]
  4. SERTRALINE HYDROCHLORIDE [Concomitant]
  5. CLONAZEPAM [Concomitant]
     Indication: MUSCLE TIGHTNESS

REACTIONS (2)
  - PROGRESSIVE MULTIFOCAL LEUKOENCEPHALOPATHY [None]
  - NUCLEAR MAGNETIC RESONANCE IMAGING ABNORMAL [None]
